FAERS Safety Report 8470974-0 (Version None)
Quarter: 2012Q2

REPORT INFORMATION
  Report Type: 
  Country: None (occurrence: None)
  Receive Date: 20120323
  Receipt Date: 20111103
  Transmission Date: 20120825
  Serious: Yes (Hospitalization)
  Sender: FDA-Public Use
  Company Number: 163-21880-11110679

PATIENT
  Age: 74 Year
  Sex: Male
  Weight: 94 kg

DRUGS (1)
  1. REVLIMID [Suspect]
     Indication: NEOPLASM
     Dosage: 5 MG, DAILY 21-21, 28 DAY CYCLE, PO
     Route: 048
     Dates: start: 20091009

REACTIONS (1)
  - FULL BLOOD COUNT DECREASED [None]
